FAERS Safety Report 9921311 (Version 1)
Quarter: 2014Q1

REPORT INFORMATION
  Report Type: Spontaneous
  Country: US (occurrence: None)
  Receive Date: 20140221
  Receipt Date: 20140221
  Transmission Date: 20141002
  Serious: Yes (Other)
  Sender: FDA-Public Use
  Company Number: None

PATIENT
  Age: 19 Year
  Sex: Female
  Weight: 132.7 kg

DRUGS (2)
  1. DESMOPRESIN [Suspect]
     Indication: DIABETES INSIPIDUS
     Route: 048
     Dates: start: 20140109, end: 20140123
  2. DESMOPRESSIN [Suspect]
     Indication: HYPOPITUITARISM
     Route: 048
     Dates: start: 20140124, end: 20140203

REACTIONS (4)
  - Drug ineffective [None]
  - Sleep disorder [None]
  - Activities of daily living impaired [None]
  - Product substitution issue [None]
